FAERS Safety Report 12161116 (Version 2)
Quarter: 2016Q1

REPORT INFORMATION
  Report Type: Spontaneous
  Country: US (occurrence: US)
  Receive Date: 20160308
  Receipt Date: 20160318
  Transmission Date: 20160526
  Serious: Yes (Other)
  Sender: FDA-Public Use
  Company Number: US-PFIZER INC-2016139047

PATIENT
  Age: 35 Year
  Sex: Female

DRUGS (4)
  1. THEPHORIN [Concomitant]
     Active Substance: BACILLUS CALMETTE-GUERIN SUBSTRAIN CONNAUGHT LIVE ANTIGEN
     Indication: PARKINSON^S DISEASE
     Dosage: UNK
  2. CORTISONE ACETATE. [Suspect]
     Active Substance: CORTISONE ACETATE
     Indication: PARKINSON^S DISEASE
     Dosage: 75 MG, 2X/DAY
     Route: 048
     Dates: start: 19510424, end: 19510426
  3. PANPARNIT [Concomitant]
     Indication: PARKINSON^S DISEASE
  4. ARTANE [Concomitant]
     Active Substance: TRIHEXYPHENIDYL HYDROCHLORIDE
     Indication: PARKINSON^S DISEASE
     Dosage: UNK

REACTIONS (2)
  - Hallucination, auditory [Recovered/Resolved]
  - Depression [Recovered/Resolved]
